FAERS Safety Report 9396925 (Version 1)
Quarter: 2013Q3

REPORT INFORMATION
  Report Type: Spontaneous
  Country: US (occurrence: US)
  Receive Date: 20130712
  Receipt Date: 20130712
  Transmission Date: 20140515
  Serious: No
  Sender: FDA-Public Use
  Company Number: US-B.I. PHARMACEUTICALS,INC./RIDGEFIELD-2013-BI-20193BP

PATIENT
  Age: 80 Year
  Sex: Female
  Weight: 103 kg

DRUGS (7)
  1. PRADAXA [Suspect]
     Indication: CEREBROVASCULAR ACCIDENT PROPHYLAXIS
     Dosage: 300 MG
     Route: 048
     Dates: start: 201103, end: 201212
  2. PRADAXA [Suspect]
     Indication: ATRIAL FIBRILLATION
     Dosage: 300 MG
     Route: 048
     Dates: start: 201212, end: 20130628
  3. FUROSEMIDE [Concomitant]
     Indication: CARDIAC FAILURE CONGESTIVE
  4. METOPROLOL [Concomitant]
     Indication: ATRIAL FIBRILLATION
  5. PRAVACHOL [Concomitant]
     Indication: HYPERLIPIDAEMIA
  6. DIGOXIN [Concomitant]
     Indication: CARDIAC FAILURE CONGESTIVE
  7. SYNTHROID [Concomitant]
     Indication: HYPOTHYROIDISM

REACTIONS (3)
  - Epistaxis [Recovered/Resolved]
  - Contusion [Recovered/Resolved]
  - Medication error [Recovered/Resolved]
